FAERS Safety Report 6752705-5 (Version None)
Quarter: 2010Q2

REPORT INFORMATION
  Report Type: 
  Country: None (occurrence: None)
  Receive Date: 20100528
  Receipt Date: 20100517
  Transmission Date: 20101027
  Serious: Yes (Other)
  Sender: FDA-Public Use
  Company Number: AUR-APL-2010-01326

PATIENT
  Age: 48 Year
  Sex: Female

DRUGS (3)
  1. ALENDRONATE SODIUM [Suspect]
     Indication: OSTEOPOROSIS
     Dosage: 70MG, WEEKLY
  2. PREDNISONE [Concomitant]
  3. LOW DOSE ESTRADIOL RELEASING RING [Concomitant]

REACTIONS (6)
  - ATROPHIC VULVOVAGINITIS [None]
  - FATIGUE [None]
  - LOOSE BODY IN JOINT [None]
  - LOWER LIMB FRACTURE [None]
  - OSTEOARTHRITIS [None]
  - STRESS FRACTURE [None]
